FAERS Safety Report 18944170 (Version 1)
Quarter: 2021Q1

REPORT INFORMATION
  Report Type: Report from Study
  Country: CA (occurrence: CA)
  Receive Date: 20210226
  Receipt Date: 20210226
  Transmission Date: 20210420
  Serious: Yes (Other)
  Sender: FDA-Public Use
  Company Number: CA-JNJFOC-20210231685

PATIENT
  Age: 61 Year
  Sex: Male
  Weight: 134 kg

DRUGS (1)
  1. STELARA [Suspect]
     Active Substance: USTEKINUMAB
     Indication: CROHN^S DISEASE
     Route: 058
     Dates: start: 20170620

REACTIONS (2)
  - Localised infection [Recovering/Resolving]
  - Skin laceration [Unknown]

NARRATIVE: CASE EVENT DATE: 202101
